FAERS Safety Report 6068745-8 (Version None)
Quarter: 2009Q1

REPORT INFORMATION
  Report Type: 
  Country: None (occurrence: None)
  Receive Date: 20090206
  Receipt Date: 20090128
  Transmission Date: 20090719
  Serious: Yes (Other)
  Sender: FDA-Public Use
  Company Number: US-JNJFOC-20081200939

PATIENT
  Sex: Male
  Weight: 71.7 kg

DRUGS (6)
  1. REMICADE [Suspect]
     Indication: CROHN'S DISEASE
     Dosage: 710 MG
     Route: 042
  2. PENTASA [Concomitant]
  3. FLAGYL [Concomitant]
  4. OSCAL D [Concomitant]
  5. MULTI-VITAMIN [Concomitant]
  6. RITALIN [Concomitant]
     Indication: ATTENTION DEFICIT/HYPERACTIVITY DISORDER

REACTIONS (1)
  - DEPRESSION [None]
